FAERS Safety Report 7072990-2 (Version None)
Quarter: 2010Q4

REPORT INFORMATION
  Report Type: 
  Country: None (occurrence: None)
  Receive Date: 20101029
  Receipt Date: 20100407
  Transmission Date: 20110411
  Serious: No
  Sender: FDA-Public Use
  Company Number: A0853929A

PATIENT
  Age: 68 Year
  Sex: Female

DRUGS (20)
  1. ADVAIR DISKUS 100/50 [Suspect]
     Indication: BRONCHITIS
     Route: 055
     Dates: start: 20080901
  2. COUGH DROPS [Concomitant]
  3. COUGH MEDICINE [Concomitant]
  4. AZITHROMYCIN [Concomitant]
  5. RIFAMPIN [Concomitant]
  6. ETHAMBUTOL HYDROCHLORIDE [Concomitant]
  7. CORDYCEPS SINENSIS [Concomitant]
  8. VITAMIN B3 [Concomitant]
  9. PROVIGIL [Concomitant]
  10. GINSENG [Concomitant]
  11. GINKO [Concomitant]
  12. DIGESTIVE ENZYME [Concomitant]
  13. CO Q 10 [Concomitant]
  14. UNKNOWN DRUG [Concomitant]
  15. VITAMIN B COMPLEX CAP [Concomitant]
  16. RED YEAST RICE [Concomitant]
  17. POTASSIUM CHLORIDE [Concomitant]
  18. CALCIUM [Concomitant]
  19. MSM [Concomitant]
  20. PROBIOTICS [Concomitant]

REACTIONS (4)
  - CANDIDIASIS [None]
  - COUGH [None]
  - HEADACHE [None]
  - NAUSEA [None]
